APPROVED DRUG PRODUCT: TAPENTADOL HYDROCHLORIDE
Active Ingredient: TAPENTADOL HYDROCHLORIDE
Strength: EQ 20MG BASE/ML
Dosage Form/Route: SOLUTION;ORAL
Application: A219119 | Product #001
Applicant: NOVITIUM PHARMA LLC
Approved: Jan 26, 2026 | RLD: No | RS: No | Type: RX